FAERS Safety Report 25206233 (Version 2)
Quarter: 2025Q2

REPORT INFORMATION
  Report Type: Spontaneous
  Country: US (occurrence: None)
  Receive Date: 20250417
  Receipt Date: 20250606
  Transmission Date: 20250716
  Serious: No
  Sender: Alvotech
  Company Number: None

PATIENT
  Sex: Female

DRUGS (1)
  1. ADALIMUMAB [Suspect]
     Active Substance: ADALIMUMAB
     Indication: Product used for unknown indication
     Route: 065

REACTIONS (4)
  - Product substitution issue [Unknown]
  - Abdominal pain [Unknown]
  - Rash [Unknown]
  - Injection site swelling [Unknown]
